FAERS Safety Report 10405038 (Version 1)
Quarter: 2014Q3

REPORT INFORMATION
  Report Type: Spontaneous
  Country: US (occurrence: US)
  Receive Date: 20140825
  Receipt Date: 20140825
  Transmission Date: 20150326
  Serious: No
  Sender: FDA-Public Use
  Company Number: US-BIOGENIDEC-2014BI083453

PATIENT

DRUGS (2)
  1. TECFIDERA [Suspect]
     Active Substance: DIMETHYL FUMARATE
     Indication: MULTIPLE SCLEROSIS
  2. RITUXAN [Concomitant]
     Active Substance: RITUXIMAB

REACTIONS (10)
  - Micturition urgency [Unknown]
  - Ageusia [Unknown]
  - Gastrooesophageal reflux disease [Unknown]
  - Constipation [Unknown]
  - Flushing [Unknown]
  - Gastric disorder [Unknown]
  - Weight decreased [Unknown]
  - Therapy change [Unknown]
  - Dehydration [Unknown]
  - Asthenia [Unknown]
